FAERS Safety Report 4958172-6 (Version None)
Quarter: 2006Q1

REPORT INFORMATION
  Report Type: 
  Country: None (occurrence: None)
  Receive Date: 20060324
  Receipt Date: 20060314
  Transmission Date: 20060701
  Serious: Yes (Disabling)
  Sender: FDA-Public Use
  Company Number: 2006021945

PATIENT
  Age: 49 Year
  Sex: Female

DRUGS (2)
  1. GENOTROPIN [Suspect]
     Indication: BLOOD GROWTH HORMONE DECREASED
     Dosage: 0.4 MCG (0.4 MCG, SINGLE, INTERVAL:  6X/WEEK,), SUBCUTANEOUS
     Route: 058
     Dates: start: 20060103, end: 20060309
  2. SYNTHROID [Concomitant]

REACTIONS (12)
  - ABASIA [None]
  - ABDOMINAL DISTENSION [None]
  - ARTHRALGIA [None]
  - BLISTER [None]
  - CONDITION AGGRAVATED [None]
  - CONSTIPATION [None]
  - FATIGUE [None]
  - INSOMNIA [None]
  - OEDEMA PERIPHERAL [None]
  - PAIN IN EXTREMITY [None]
  - SINUSITIS [None]
  - SKIN DISCOLOURATION [None]
